FAERS Safety Report 13819827 (Version 1)
Quarter: 2017Q3

REPORT INFORMATION
  Report Type: Report from Study
  Country: None (occurrence: BR)
  Receive Date: 20170731
  Receipt Date: 20170731
  Transmission Date: 20171127
  Serious: Yes (Hospitalization, Other)
  Sender: FDA-Public Use
  Company Number: BR-ABBVIE-17K-020-2054420-00

PATIENT
  Age: 45 Year
  Sex: Male
  Weight: 60 kg

DRUGS (2)
  1. HUMIRA [Suspect]
     Active Substance: ADALIMUMAB
     Indication: PSORIATIC ARTHROPATHY
     Route: 058
     Dates: start: 20150301, end: 2015
  2. HUMIRA [Suspect]
     Active Substance: ADALIMUMAB
     Route: 058
     Dates: start: 2016

REACTIONS (9)
  - Craniocerebral injury [Recovered/Resolved]
  - Traumatic intracranial haemorrhage [Recovered/Resolved]
  - Perforation [Recovered/Resolved]
  - Joint dislocation [Unknown]
  - Fall [Recovered/Resolved]
  - Wrist fracture [Recovered/Resolved]
  - Clavicle fracture [Recovered/Resolved]
  - Pleural effusion [Recovered/Resolved]
  - Loss of consciousness [Recovered/Resolved]

NARRATIVE: CASE EVENT DATE: 20150807
